FAERS Safety Report 25937019 (Version 2)
Quarter: 2025Q4

REPORT INFORMATION
  Report Type: Spontaneous
  Country: US (occurrence: US)
  Receive Date: 20251017
  Receipt Date: 20251117
  Transmission Date: 20260118
  Serious: Yes (Hospitalization, Other)
  Sender: BAYER HEALTHCARE PHARMACEUTICALS INC.
  Company Number: US-BAYER-2025A135420

PATIENT
  Age: 68 Year
  Sex: Male

DRUGS (10)
  1. ADEMPAS [Suspect]
     Active Substance: RIOCIGUAT
     Indication: Pulmonary hypertension
     Dosage: 1 MG, TID
     Route: 048
     Dates: start: 20220926
  2. POTASSIUM CHLORIDE [Concomitant]
     Active Substance: POTASSIUM CHLORIDE
  3. METOLAZONE [Concomitant]
     Active Substance: METOLAZONE
  4. METOPROLOL [Concomitant]
     Active Substance: METOPROLOL
  5. ELIQUIS [Concomitant]
     Active Substance: APIXABAN
  6. JARDIANCE [Concomitant]
     Active Substance: EMPAGLIFLOZIN
  7. LEVOTHYROXINE [Concomitant]
     Active Substance: LEVOTHYROXINE
  8. SERTRALINE [Concomitant]
     Active Substance: SERTRALINE HYDROCHLORIDE
  9. BUMETANIDE [Concomitant]
     Active Substance: BUMETANIDE
  10. HYDROCHLOROTHIAZIDE [Concomitant]
     Active Substance: HYDROCHLOROTHIAZIDE

REACTIONS (3)
  - Presyncope [None]
  - Fluid imbalance [None]
  - Respiratory disorder [None]

NARRATIVE: CASE EVENT DATE: 20251030
